FAERS Safety Report 11985111 (Version 1)
Quarter: 2016Q1

REPORT INFORMATION
  Report Type: Spontaneous
  Country: US (occurrence: US)
  Receive Date: 20160201
  Receipt Date: 20160201
  Transmission Date: 20160526
  Serious: Yes (Hospitalization)
  Sender: FDA-Public Use
  Company Number: US-PERNIX THERAPEUTICS-2016PT000009

PATIENT

DRUGS (8)
  1. HYDROCODONE BITARTRATE. [Suspect]
     Active Substance: HYDROCODONE BITARTRATE
     Indication: PAIN
  2. IBUPROFEN. [Suspect]
     Active Substance: IBUPROFEN
     Indication: PAIN
  3. LYRICA [Suspect]
     Active Substance: PREGABALIN
     Indication: PAIN
     Dosage: UNK
  4. OXYCONTIN [Suspect]
     Active Substance: OXYCODONE HYDROCHLORIDE
     Indication: PAIN
  5. NITROGLYCERIN. [Concomitant]
     Active Substance: NITROGLYCERIN
     Indication: DYSPNOEA
  6. OXYCODONE [Suspect]
     Active Substance: OXYCODONE
     Indication: PAIN
  7. SYNTHROID [Concomitant]
     Active Substance: LEVOTHYROXINE SODIUM
     Dosage: 1.12 MG, DAILY
  8. PARACETAMOL [Suspect]
     Active Substance: ACETAMINOPHEN
     Indication: PAIN

REACTIONS (7)
  - Tremor [Recovered/Resolved]
  - Cardiac murmur [Unknown]
  - Heart rate decreased [Unknown]
  - Dyspnoea [Unknown]
  - Oedema peripheral [Recovered/Resolved]
  - Pain [Not Recovered/Not Resolved]
  - Drug ineffective [Not Recovered/Not Resolved]

NARRATIVE: CASE EVENT DATE: 20151217
